FAERS Safety Report 6751086-0 (Version None)
Quarter: 2010Q2

REPORT INFORMATION
  Report Type: 
  Country: None (occurrence: None)
  Receive Date: 20100602
  Receipt Date: 20100525
  Transmission Date: 20101027
  Serious: Yes (Hospitalization)
  Sender: FDA-Public Use
  Company Number: FR-JNJFOC-20100510820

PATIENT
  Sex: Female

DRUGS (7)
  1. RISPERDAL [Suspect]
     Indication: ABNORMAL BEHAVIOUR
     Route: 048
  2. METHOTREXATE [Interacting]
     Indication: ACUTE LYMPHOCYTIC LEUKAEMIA
     Route: 042
  3. LYSANXIA [Interacting]
     Indication: ABNORMAL BEHAVIOUR
     Route: 048
  4. TERCIAN [Interacting]
     Indication: DRUG USE FOR UNKNOWN INDICATION
  5. VINCRISTINE [Concomitant]
     Route: 042
  6. ELVORINE [Concomitant]
     Indication: DRUG USE FOR UNKNOWN INDICATION
     Route: 065
  7. PURINETHOL [Concomitant]
     Route: 048

REACTIONS (3)
  - DRUG INTERACTION [None]
  - DRUG LEVEL INCREASED [None]
  - ORAL DISORDER [None]
